FAERS Safety Report 10562427 (Version 18)
Quarter: 2016Q1

REPORT INFORMATION
  Report Type: Report from Study
  Country: BR (occurrence: BR)
  Receive Date: 20141104
  Receipt Date: 20160307
  Transmission Date: 20160525
  Serious: Yes (Hospitalization, Other)
  Sender: FDA-Public Use
  Company Number: PHHY2014BR143165

PATIENT
  Age: 88 Year
  Sex: Male
  Weight: 59.4 kg

DRUGS (28)
  1. AAS [Suspect]
     Active Substance: ASPIRIN
     Indication: PRODUCT USED FOR UNKNOWN INDICATION
     Dosage: 100 MG, QD
     Route: 048
  2. ENABLEX [Concomitant]
     Active Substance: DARIFENACIN HYDROBROMIDE
     Indication: PROSTATOMEGALY
     Dosage: 0.5 DF, QD
     Route: 048
  3. ALLOPURINOL. [Concomitant]
     Active Substance: ALLOPURINOL
     Indication: DIURETIC THERAPY
     Dosage: 1 DF, QD
     Route: 048
  4. RIVASTIGMINE TARTRATE. [Concomitant]
     Active Substance: RIVASTIGMINE TARTRATE
     Dosage: 6 MG, UNK
     Route: 065
  5. CHLORTHALIDONE. [Concomitant]
     Active Substance: CHLORTHALIDONE
     Indication: DIURETIC THERAPY
     Dosage: 1 DF, QD
     Route: 048
  6. SECOTEX ADV [Concomitant]
     Active Substance: TAMSULOSIN
     Indication: PROSTATIC DISORDER
     Dosage: 1 DF, QD
     Route: 048
  7. AAS [Suspect]
     Active Substance: ASPIRIN
     Dosage: 20 DF, UNK
     Route: 065
     Dates: start: 20150115
  8. FLUOXETINE HYDROCHLORIDE. [Concomitant]
     Active Substance: FLUOXETINE HYDROCHLORIDE
     Indication: PRODUCT USED FOR UNKNOWN INDICATION
     Dosage: 1 DF, QD
     Route: 048
  9. ENABLEX [Concomitant]
     Active Substance: DARIFENACIN HYDROBROMIDE
     Dosage: 0.5 DF, UNK
     Route: 065
  10. LIPITOR [Concomitant]
     Active Substance: ATORVASTATIN CALCIUM
     Indication: BLOOD CHOLESTEROL INCREASED
     Dosage: 2 DF, QD
     Route: 048
  11. ENALAPRIL [Concomitant]
     Active Substance: ENALAPRIL
     Indication: BLOOD PRESSURE INCREASED
     Route: 048
  12. AMLODIPINE [Concomitant]
     Active Substance: AMLODIPINE BESYLATE
     Indication: THROMBOSIS PROPHYLAXIS
     Dosage: 1 DF, QD
     Route: 048
  13. VERTIX//FLUNARIZINE DIHYDROCHLORIDE [Concomitant]
     Active Substance: FLUNARIZINE HYDROCHLORIDE
     Indication: TYMPANIC MEMBRANE PERFORATION
     Dosage: 1 DF, QD
     Route: 048
  14. CHLORTHALIDONE. [Concomitant]
     Active Substance: CHLORTHALIDONE
     Indication: BLOOD PRESSURE INCREASED
  15. DEPRESS//FLUOXETINE HYDROCHLORIDE [Concomitant]
     Indication: PRODUCT USED FOR UNKNOWN INDICATION
     Dosage: 1 DF, QD
     Route: 048
  16. SANDOSTATIN LAR DEPOT [Suspect]
     Active Substance: OCTREOTIDE ACETATE
     Dosage: 20 MG, QMO
     Route: 030
     Dates: start: 201511
  17. EXELON [Concomitant]
     Active Substance: RIVASTIGMINE TARTRATE
     Indication: DEMENTIA ALZHEIMER^S TYPE
     Route: 065
  18. RIVASTIGMINE TARTRATE. [Concomitant]
     Active Substance: RIVASTIGMINE TARTRATE
     Indication: DEMENTIA ALZHEIMER^S TYPE
     Dosage: 2 DF, QD
     Route: 048
  19. SECOTEX ADV [Concomitant]
     Active Substance: TAMSULOSIN
     Indication: BLADDER DISORDER
  20. LEVOTHYROXINE SODIUM. [Concomitant]
     Active Substance: LEVOTHYROXINE SODIUM
     Indication: THYROID NEOPLASM
     Dosage: 1 DF, QD
     Route: 048
  21. VITAMIN E [Concomitant]
     Active Substance: .ALPHA.-TOCOPHEROL
     Indication: PRODUCT USED FOR UNKNOWN INDICATION
     Dosage: 1 DF, QOD
     Route: 048
  22. SEROQUEL [Concomitant]
     Active Substance: QUETIAPINE FUMARATE
     Indication: SLEEP DISORDER
     Dosage: 0.5 DF, QD
     Route: 048
  23. SOMALGIN [Concomitant]
     Active Substance: ASPIRIN\DIHYDROXYALUMINUM AMINOACETATE ANHYDROUS\MAGNESIUM CARBONATE
     Indication: CARDIOVASCULAR EVENT PROPHYLAXIS
     Dosage: 1 DF, QD
     Route: 048
  24. COLECALCIFEROL [Concomitant]
     Active Substance: CHOLECALCIFEROL
     Indication: BONE DISORDER
     Dosage: 1 DF, QD
     Route: 048
  25. OMPRAZOLE [Concomitant]
     Active Substance: OMEPRAZOLE
     Indication: GASTRITIS PROPHYLAXIS
     Dosage: 2 DF, QD
     Route: 048
     Dates: start: 2007
  26. ATORVASTATIN [Concomitant]
     Active Substance: ATORVASTATIN
     Indication: PRODUCT USED FOR UNKNOWN INDICATION
     Route: 065
  27. SANDOSTATIN LAR DEPOT [Suspect]
     Active Substance: OCTREOTIDE ACETATE
     Indication: ACROMEGALY
     Dosage: 30 MG, QMO
     Route: 030
     Dates: start: 1976, end: 201511
  28. SYNTHROID [Concomitant]
     Active Substance: LEVOTHYROXINE SODIUM
     Indication: THYROID NEOPLASM
     Dosage: 1 DF, QD
     Route: 048

REACTIONS (39)
  - Urine analysis abnormal [Recovered/Resolved]
  - Vomiting [Recovering/Resolving]
  - Pain [Unknown]
  - Feeling abnormal [Recovered/Resolved]
  - Overdose [Recovered/Resolved]
  - Lung disorder [Unknown]
  - Dysstasia [Unknown]
  - Hypotension [Unknown]
  - Pneumonia [Recovered/Resolved]
  - Pancreatolithiasis [Unknown]
  - Dementia Alzheimer^s type [Recovering/Resolving]
  - Lung neoplasm malignant [Not Recovered/Not Resolved]
  - Muscular weakness [Unknown]
  - Weight decreased [Not Recovered/Not Resolved]
  - Pneumonia [Recovered/Resolved]
  - Tooth fracture [Recovering/Resolving]
  - Eating disorder [Recovered/Resolved]
  - Osteoporosis [Not Recovered/Not Resolved]
  - Tremor [Recovered/Resolved]
  - Amnesia [Not Recovered/Not Resolved]
  - Asthenia [Unknown]
  - Chills [Recovering/Resolving]
  - Malaise [Unknown]
  - Concomitant disease aggravated [Unknown]
  - Gastrointestinal infection [Recovered/Resolved]
  - Anger [Unknown]
  - Body height decreased [Not Recovered/Not Resolved]
  - Cholelithiasis [Recovering/Resolving]
  - Pyrexia [Recovered/Resolved]
  - Malnutrition [Recovering/Resolving]
  - Cough [Recovered/Resolved]
  - Pyrexia [Recovered/Resolved]
  - Hypertension [Recovered/Resolved]
  - Tremor [Recovering/Resolving]
  - Blood pressure fluctuation [Recovering/Resolving]
  - Diarrhoea [Recovered/Resolved]
  - Gait disturbance [Recovered/Resolved]
  - Thinking abnormal [Not Recovered/Not Resolved]
  - Anaemia [Recovering/Resolving]

NARRATIVE: CASE EVENT DATE: 201410
